FAERS Safety Report 8418536-5 (Version None)
Quarter: 2012Q2

REPORT INFORMATION
  Report Type: 
  Country: None (occurrence: None)
  Receive Date: 20120607
  Receipt Date: 20120530
  Transmission Date: 20120825
  Serious: Yes (Hospitalization)
  Sender: FDA-Public Use
  Company Number: US-ASTRAZENECA-2012SE30723

PATIENT
  Age: 64 Year
  Sex: Female

DRUGS (4)
  1. ATACAND [Suspect]
     Route: 048
  2. TOPROL-XL [Suspect]
     Indication: HYPERTENSION
     Dosage: 100 MG IN THE MORNING AND 100 MG IN THE EVENING
     Route: 048
  3. ATACAND [Suspect]
     Indication: HYPERTENSION
     Route: 048
  4. CLONIDINE [Concomitant]

REACTIONS (4)
  - BLOOD PRESSURE FLUCTUATION [None]
  - HYPERTENSION [None]
  - DRUG INEFFECTIVE [None]
  - INTENTIONAL DRUG MISUSE [None]
